FAERS Safety Report 5423784-2 (Version None)
Quarter: 2007Q3

REPORT INFORMATION
  Report Type: 
  Country: None (occurrence: None)
  Receive Date: 20070823
  Receipt Date: 20070424
  Transmission Date: 20080115
  Serious: Yes (Death)
  Sender: FDA-Public Use
  Company Number: DE-JNJFOC-20070404883

PATIENT
  Age: 85 Year
  Sex: Male

DRUGS (2)
  1. JURNISTA [Suspect]
     Indication: PAIN
     Route: 048
  2. DURAGESIC-100 [Suspect]
     Indication: PAIN
     Route: 062

REACTIONS (8)
  - DEPRESSED LEVEL OF CONSCIOUSNESS [None]
  - DRUG INEFFECTIVE [None]
  - FEEDING TUBE COMPLICATION [None]
  - INADEQUATE ANALGESIA [None]
  - ORAL INTAKE REDUCED [None]
  - RESPIRATORY FAILURE [None]
  - RESPIRATORY PARALYSIS [None]
  - RESTLESSNESS [None]
